FAERS Safety Report 14872109 (Version 2)
Quarter: 2018Q2

REPORT INFORMATION
  Report Type: Spontaneous
  Country: ES (occurrence: ES)
  Receive Date: 20180509
  Receipt Date: 20180522
  Transmission Date: 20180711
  Serious: Yes (Other)
  Sender: FDA-Public Use
  Company Number: ES-BAUSCH-BL-2018-013402

PATIENT
  Age: 52 Year
  Sex: Male

DRUGS (4)
  1. RIBAVIRIN. [Suspect]
     Active Substance: RIBAVIRIN
     Indication: FIBROSIS
     Dosage: 1 DAYS
     Route: 065
     Dates: start: 201402
  2. PEGYLATED INTERFERON NOS [Suspect]
     Active Substance: PEGINTERFERON ALFA-2A OR PEGINTERFERON ALFA-2B OR PEGINTERFERON BETA-1A OR PEGINTERFERON LAMBDA-1A
     Indication: FIBROSIS
     Dosage: 1 WEEK
     Route: 065
     Dates: start: 201402
  3. TELAPREVIR [Suspect]
     Active Substance: TELAPREVIR
     Indication: FIBROSIS
     Dosage: IN 8 HOURS
     Route: 065
     Dates: start: 201402
  4. ACENOCUMAROL [Concomitant]
     Active Substance: ACENOCOUMAROL
     Indication: ENDOCARDITIS

REACTIONS (5)
  - Staphylococcal infection [Recovered/Resolved]
  - Bacteraemia [Recovered/Resolved]
  - Thrombocytopenia [Recovered/Resolved]
  - Sepsis [Recovered/Resolved]
  - Anaemia [Recovered/Resolved]
